FAERS Safety Report 18847675 (Version 2)
Quarter: 2021Q2

REPORT INFORMATION
  Report Type: Spontaneous
  Country: US (occurrence: US)
  Receive Date: 20210204
  Receipt Date: 20210511
  Transmission Date: 20210717
  Serious: Yes (Hospitalization)
  Sender: FDA-Public Use
  Company Number: US-JNJFOC-20210201991

PATIENT
  Age: 60 Year
  Sex: Female

DRUGS (2)
  1. PREDNISONE. [Concomitant]
     Active Substance: PREDNISONE
  2. STELARA [Suspect]
     Active Substance: USTEKINUMAB
     Indication: PYODERMA GANGRENOSUM
     Route: 058

REACTIONS (4)
  - Product use in unapproved indication [Unknown]
  - Off label use [Unknown]
  - Drug specific antibody [Unknown]
  - Pseudomonas infection [Recovered/Resolved]
